FAERS Safety Report 13432564 (Version 2)
Quarter: 2017Q2

REPORT INFORMATION
  Report Type: Spontaneous
  Country: US (occurrence: US)
  Receive Date: 20170412
  Receipt Date: 20170601
  Transmission Date: 20170830
  Serious: No
  Sender: FDA-Public Use
  Company Number: US-009507513-1704USA001526

PATIENT
  Age: 20 Year
  Sex: Female
  Weight: 86.62 kg

DRUGS (1)
  1. NEXPLANON [Suspect]
     Active Substance: ETONOGESTREL
     Indication: CONTRACEPTION
     Dosage: 1 DF, PER 3 YEARS
     Route: 059
     Dates: start: 20140104, end: 20170404

REACTIONS (4)
  - Migration of implanted drug [Recovered/Resolved]
  - Incorrect drug administration duration [Unknown]
  - Device breakage [Recovered/Resolved]
  - No adverse event [Unknown]

NARRATIVE: CASE EVENT DATE: 20170104
